FAERS Safety Report 6419881-5 (Version None)
Quarter: 2009Q4

REPORT INFORMATION
  Report Type: 
  Country: None (occurrence: None)
  Receive Date: 20091029
  Receipt Date: 20091023
  Transmission Date: 20100525
  Serious: Yes (Other)
  Sender: FDA-Public Use
  Company Number: BE-MERCK-0910BEL00003

PATIENT
  Age: 70 Year
  Sex: Female
  Weight: 62 kg

DRUGS (5)
  1. JANUVIA [Suspect]
     Indication: DIABETES MELLITUS
     Route: 048
     Dates: start: 20091001, end: 20091005
  2. JANUVIA [Suspect]
     Route: 048
     Dates: start: 20091010, end: 20091013
  3. METFORMIN HYDROCHLORIDE [Concomitant]
     Indication: DIABETES MELLITUS
     Route: 048
     Dates: start: 20070101
  4. HYZAAR [Concomitant]
     Indication: HYPERTENSION
     Route: 048
     Dates: start: 20040101
  5. BISOPROLOL [Concomitant]
     Indication: HYPERTENSION
     Route: 048
     Dates: start: 20040101

REACTIONS (3)
  - DRY MOUTH [None]
  - DYSGEUSIA [None]
  - MYALGIA [None]
